FAERS Safety Report 4802924-X (Version None)
Quarter: 2005Q4

REPORT INFORMATION
  Report Type: 
  Country: None (occurrence: None)
  Receive Date: 20051013
  Receipt Date: 20051003
  Transmission Date: 20060501
  Serious: Yes (Hospitalization)
  Sender: FDA-Public Use
  Company Number: 2005137853

PATIENT
  Age: 77 Year
  Sex: Male

DRUGS (14)
  1. ALDACTONE [Suspect]
     Indication: ILL-DEFINED DISORDER
     Dosage: 25 MG DAILY, ORAL
     Route: 048
     Dates: start: 20050625
  2. FUROSEMIDE [Suspect]
     Indication: ESSENTIAL HYPERTENSION
     Dosage: 20 MG DAILY, ORAL
     Route: 048
     Dates: end: 20050625
  3. LOSARTAN POTASSIUM W/HYDROCHLOROTHIAZIDE (HYDROCHLOROTHIAZIDE, LOSARTA [Suspect]
     Indication: ESSENTIAL HYPERTENSION
     Dosage: ORAL
     Route: 048
     Dates: end: 20050625
  4. LISINOPRIL DIHYDRATE (LISINOPRIL DIHYDRATE) [Concomitant]
  5. ALLOPURINOL [Concomitant]
  6. PERMIXON (SERENOA REPENS) [Concomitant]
  7. LEVODOPA-CARBIDOPA (CARBIDOPA, LEVODOPA) [Concomitant]
  8. POTASSIUM CHLORIDE [Concomitant]
  9. AMIODARONE CHLORIDE (AMIODARONE HYDROCHLORIDE) [Concomitant]
  10. WARFARIN SODIUM [Concomitant]
  11. ATEPADENE (ADENOSINE PHOSPHATE, SODIUM SALT, DEOXYRIBONUCLEIC ACID) [Concomitant]
  12. CALCIUM CARBONATE (CALCIUM CARBONATE) [Concomitant]
  13. SULBUTIAMINE (SULBUTIAMINE) [Concomitant]
  14. ENTACAPONE (ENTACAPONE) [Concomitant]

REACTIONS (6)
  - ASTHENIA [None]
  - HYPOCHLORAEMIA [None]
  - HYPONATRAEMIA [None]
  - NAUSEA [None]
  - PSYCHOMOTOR RETARDATION [None]
  - VOMITING [None]
